FAERS Safety Report 7008567-4 (Version None)
Quarter: 2010Q3

REPORT INFORMATION
  Report Type: 
  Country: None (occurrence: None)
  Receive Date: 20100922
  Receipt Date: 20100916
  Transmission Date: 20110219
  Serious: No
  Sender: FDA-Public Use
  Company Number: US-PFIZER INC-2010118263

PATIENT
  Sex: Female

DRUGS (1)
  1. LIPITOR [Suspect]
     Indication: LIPIDS INCREASED
     Dosage: 40 MG, 1X/DAY
     Route: 048
     Dates: start: 20091201, end: 20100101

REACTIONS (1)
  - TRICHORRHEXIS [None]
